FAERS Safety Report 9922799 (Version 1)
Quarter: 2014Q1

REPORT INFORMATION
  Report Type: Spontaneous
  Country: GB (occurrence: GB)
  Receive Date: 20140225
  Receipt Date: 20140225
  Transmission Date: 20141002
  Serious: Yes (Other)
  Sender: FDA-Public Use
  Company Number: GB-ACTAVIS-2013-25027

PATIENT
  Sex: Female

DRUGS (1)
  1. LETROZOLE [Suspect]
     Indication: BREAST CANCER
     Route: 048
     Dates: start: 201309

REACTIONS (5)
  - Hypoaesthesia [Unknown]
  - Vision blurred [Unknown]
  - Rash [Unknown]
  - Night sweats [Unknown]
  - Dry mouth [Unknown]
